FAERS Safety Report 13695762 (Version 1)
Quarter: 2017Q2

REPORT INFORMATION
  Report Type: Spontaneous
  Country: IT (occurrence: IT)
  Receive Date: 20170627
  Receipt Date: 20170627
  Transmission Date: 20170830
  Serious: Yes (Other)
  Sender: FDA-Public Use
  Company Number: PHHY2017IT091415

PATIENT
  Age: 78 Year
  Sex: Male

DRUGS (1)
  1. KETOROLAC [Suspect]
     Active Substance: KETOROLAC\KETOROLAC TROMETHAMINE
     Indication: OSTEOARTHRITIS
     Route: 065

REACTIONS (5)
  - Contraindicated drug prescribed [Unknown]
  - Gastrointestinal haemorrhage [Recovered/Resolved]
  - Haemorrhagic anaemia [Recovered/Resolved]
  - Contraindicated product administered [Unknown]
  - Off label use [Unknown]
